FAERS Safety Report 17264341 (Version 2)
Quarter: 2020Q1

REPORT INFORMATION
  Report Type: Spontaneous
  Country: AU (occurrence: AU)
  Receive Date: 20200113
  Receipt Date: 20200319
  Transmission Date: 20200409
  Serious: Yes (Other)
  Sender: FDA-Public Use
  Company Number: PHHY2019AU222585

PATIENT
  Sex: Female
  Weight: 78 kg

DRUGS (2)
  1. RANITIDINE. [Suspect]
     Active Substance: RANITIDINE
     Indication: GASTROOESOPHAGEAL REFLUX DISEASE
     Dosage: 150 MG
     Route: 048
     Dates: start: 201905, end: 20190920
  2. PROBIOTIC [Concomitant]
     Active Substance: PROBIOTICS NOS
     Indication: PRODUCT USED FOR UNKNOWN INDICATION
     Dosage: UNK, QD (SINCE JULY)
     Route: 048

REACTIONS (6)
  - Hypothyroidism [Unknown]
  - Maternal exposure during pregnancy [Unknown]
  - Product contamination [Unknown]
  - Nausea [Unknown]
  - Normal newborn [Unknown]
  - Vomiting [Unknown]

NARRATIVE: CASE EVENT DATE: 2019
